FAERS Safety Report 4523757-8 (Version None)
Quarter: 2004Q4

REPORT INFORMATION
  Report Type: 
  Country: None (occurrence: None)
  Receive Date: 20041210
  Receipt Date: 20041210
  Transmission Date: 20050328
  Serious: Yes (Hospitalization)
  Sender: FDA-Public Use
  Company Number: None

PATIENT
  Age: 74 Year
  Sex: Male
  Weight: 104.3273 kg

DRUGS (2)
  1. ROFECOXIB 50 MG [Suspect]
     Indication: ARTHRITIS
     Dosage: 25 MG DAILY
     Dates: start: 20030601, end: 20041001
  2. ASPIRIN [Suspect]
     Indication: PROPHYLAXIS
     Dosage: 325 MG DAILY
     Dates: start: 19980101

REACTIONS (3)
  - DRUG INEFFECTIVE [None]
  - DUODENAL ULCER [None]
  - GASTROINTESTINAL HAEMORRHAGE [None]
